FAERS Safety Report 13895394 (Version 1)
Quarter: 2017Q3

REPORT INFORMATION
  Report Type: Spontaneous
  Country: GB (occurrence: GB)
  Receive Date: 20170823
  Receipt Date: 20170823
  Transmission Date: 20171127
  Serious: Yes (Disabling, Other)
  Sender: FDA-Public Use
  Company Number: GB-AUROBINDO-AUR-APL-2017-38918

PATIENT
  Age: 20 Year
  Sex: Male
  Weight: 70 kg

DRUGS (1)
  1. SERTRALINE [Suspect]
     Active Substance: SERTRALINE HYDROCHLORIDE
     Indication: PRODUCT USED FOR UNKNOWN INDICATION
     Route: 065
     Dates: end: 201602

REACTIONS (9)
  - Depression [Recovering/Resolving]
  - Memory impairment [Recovering/Resolving]
  - Loss of libido [Recovering/Resolving]
  - Erectile dysfunction [Recovering/Resolving]
  - Anorgasmia [Recovering/Resolving]
  - Head discomfort [Recovering/Resolving]
  - Withdrawal syndrome [Recovering/Resolving]
  - Cognitive disorder [Recovering/Resolving]
  - Anhedonia [Recovering/Resolving]

NARRATIVE: CASE EVENT DATE: 201602
